FAERS Safety Report 25995248 (Version 1)
Quarter: 2025Q4

REPORT INFORMATION
  Report Type: Spontaneous
  Country: GB (occurrence: GB)
  Receive Date: 20251104
  Receipt Date: 20251104
  Transmission Date: 20260118
  Serious: Yes (Other)
  Sender: IPSEN BIOPHARMACEUTICALS, INC.
  Company Number: GB-ADVANZ PHARMA-202309008389

PATIENT
  Age: 44 Year
  Sex: Female

DRUGS (13)
  1. LANREOTIDE ACETATE [Suspect]
     Active Substance: LANREOTIDE ACETATE
     Indication: Neuroendocrine tumour
     Route: 030
     Dates: start: 202407
  2. AMLODIPINE [Concomitant]
     Active Substance: AMLODIPINE BESYLATE
     Indication: Blood pressure management
     Dosage: 5 MG, QD (1 TABLET EACH A DAY)
  3. PERINDOPRIL [Concomitant]
     Active Substance: PERINDOPRIL
     Indication: Blood pressure management
     Dosage: 8 MG, QD (1 TABLET EACH A DAY)
  4. INDAPAMIDE [Concomitant]
     Active Substance: INDAPAMIDE
     Indication: Blood pressure management
     Dosage: 2.5 MG, QD (1 TABLET EACH A DAY)
  5. GINKGO [Concomitant]
     Active Substance: GINKGO
     Dosage: 600 MG, QD (ONE CAPSULE OF EACH PER DAY)
  6. DIETARY SUPPLEMENT [Concomitant]
     Active Substance: DIETARY SUPPLEMENT
     Dosage: 1000 MG, QD (ONE CAPSULE OF EACH PER DAY)
  7. DIETARY SUPPLEMENT\RESVERATROL [Concomitant]
     Active Substance: DIETARY SUPPLEMENT\RESVERATROL
     Dosage: 600 MG, QD (ONE CAPSULE OF EACH PER DAY)
  8. CANNABIDIOL\HERBALS [Concomitant]
     Active Substance: CANNABIDIOL\HERBALS
     Indication: Pain
     Dosage: UNK (ONLY WHEN IN EXTREME PAIN AND THAT IS ONCE IN A WHILE)
  9. Milk thistle supplement [Concomitant]
     Dosage: UNK, QD (FROM VOGEL)
  10. NAC [Concomitant]
     Dosage: ONE CAPSULE OF EACH PER DAY
  11. Rhadiola [Concomitant]
     Dosage: ONE CAPSULE OF EACH PER DAY
  12. OMEGA 3 [Concomitant]
     Active Substance: CAPSAICIN
     Dosage: ONE CAPSULE OF EACH PER DAY
  13. IRON [Concomitant]
     Active Substance: IRON
     Indication: Anaemia

REACTIONS (20)
  - Ovarian cyst ruptured [Not Recovered/Not Resolved]
  - Type 2 diabetes mellitus [Unknown]
  - Anal incontinence [Recovering/Resolving]
  - Frequent bowel movements [Unknown]
  - Abdominal pain [Not Recovered/Not Resolved]
  - Benign neoplasm [Unknown]
  - Palpitations [Unknown]
  - Ovarian cyst [Unknown]
  - Contusion [Unknown]
  - Fall [Unknown]
  - Gastrooesophageal reflux disease [Unknown]
  - Cough [Unknown]
  - Cyst [Unknown]
  - Abdominal discomfort [Not Recovered/Not Resolved]
  - Dyspepsia [Unknown]
  - Fatigue [Not Recovered/Not Resolved]
  - Dizziness [Not Recovered/Not Resolved]
  - Diarrhoea [Not Recovered/Not Resolved]
  - Inappropriate schedule of product administration [Unknown]
  - Manufacturing issue [Unknown]

NARRATIVE: CASE EVENT DATE: 20210101
